FAERS Safety Report 11013053 (Version 2)
Quarter: 2015Q2

REPORT INFORMATION
  Report Type: Spontaneous
  Country: US (occurrence: US)
  Receive Date: 20150411
  Receipt Date: 20150525
  Transmission Date: 20150821
  Serious: Yes (Other)
  Sender: FDA-Public Use
  Company Number: US-JNJFOC-20130522809

PATIENT
  Age: 42 Year
  Sex: Male
  Weight: 78.47 kg

DRUGS (4)
  1. PREDNISONE. [Concomitant]
     Active Substance: PREDNISONE
     Indication: CROHN^S DISEASE
     Dosage: EVERY OTHER DAY
     Route: 048
     Dates: start: 2003
  2. REMICADE [Suspect]
     Active Substance: INFLIXIMAB
     Indication: CROHN^S DISEASE
     Route: 042
     Dates: start: 2003
  3. ACTONEL [Concomitant]
     Active Substance: RISEDRONATE SODIUM
     Indication: CROHN^S DISEASE
     Route: 048
     Dates: start: 2003
  4. ASACOL [Concomitant]
     Active Substance: MESALAMINE
     Indication: CROHN^S DISEASE
     Route: 048
     Dates: start: 2003

REACTIONS (2)
  - Psoriasis [Not Recovered/Not Resolved]
  - Pharyngitis streptococcal [Not Recovered/Not Resolved]

NARRATIVE: CASE EVENT DATE: 20130520
